FAERS Safety Report 8366217-9 (Version None)
Quarter: 2012Q1

REPORT INFORMATION
  Report Type: 
  Country: None (occurrence: None)
  Receive Date: 20120323
  Receipt Date: 20110908
  Transmission Date: 20120608
  Serious: Yes (Hospitalization)
  Sender: FDA-Public Use
  Company Number: 163-21880-11041455

PATIENT
  Age: 68 Year
  Sex: Male

DRUGS (2)
  1. REVLIMID [Suspect]
     Indication: MULTIPLE MYELOMA
     Dosage: 25 MG, DAILY 21 OUT OF 28 DAYS, PO , 15 MG, DAILY 21 OUT OF 28 DAYS, PO
     Route: 048
     Dates: start: 20110501
  2. REVLIMID [Suspect]
     Indication: MULTIPLE MYELOMA
     Dosage: 25 MG, DAILY 21 OUT OF 28 DAYS, PO , 15 MG, DAILY 21 OUT OF 28 DAYS, PO
     Route: 048
     Dates: start: 20110301

REACTIONS (2)
  - DIZZINESS [None]
  - HEADACHE [None]
